FAERS Safety Report 11622904 (Version 1)
Quarter: 2015Q4

REPORT INFORMATION
  Report Type: Spontaneous
  Country: US (occurrence: US)
  Receive Date: 20151013
  Receipt Date: 20151013
  Transmission Date: 20160304
  Serious: No
  Sender: FDA-Public Use
  Company Number: US-JNJFOC-20150511692

PATIENT
  Age: 70 Year
  Sex: Female
  Weight: 77.11 kg

DRUGS (11)
  1. PERCOCET [Concomitant]
     Active Substance: ACETAMINOPHEN\OXYCODONE HYDROCHLORIDE
     Indication: ANALGESIC THERAPY
     Dosage: 5/325/MG,12 DAYS
     Route: 065
     Dates: start: 20150501
  2. TRAMADOL. [Concomitant]
     Active Substance: TRAMADOL
     Indication: ANALGESIC THERAPY
     Dosage: 12 DAYS
     Route: 065
     Dates: start: 20150501
  3. ANTIEPILEPTIC MEDICATION [Concomitant]
     Indication: EPILEPSY
     Dosage: SINCE YEARS
     Route: 065
  4. TYLENOL EXTRA STRENGTH [Suspect]
     Active Substance: ACETAMINOPHEN
     Indication: ANALGESIC THERAPY
     Dosage: EVERY 4-6 HOURS
     Route: 048
     Dates: start: 20150513, end: 20150515
  5. UNSPECIFIED BLOOD PRESSURE MEDS [Concomitant]
     Indication: HYPERTENSION
     Dosage: SINCE YEARS
     Route: 065
  6. BENADRYL ULTRA TABS [Concomitant]
     Indication: HYPERSENSITIVITY
     Dosage: 4-6 HOURS DAILY, 2 DAYS
     Route: 065
     Dates: start: 20150513
  7. LAXATIVE [Concomitant]
     Active Substance: UNSPECIFIED INGREDIENT
     Indication: ABNORMAL FAECES
     Dosage: 12 DAYS
     Route: 065
     Dates: start: 20150501
  8. PAIN MEDICATION UNSPECIFIED [Concomitant]
     Active Substance: UNSPECIFIED INGREDIENT
     Indication: PRODUCT USED FOR UNKNOWN INDICATION
     Route: 065
  9. TYLENOL EXTRA STRENGTH [Suspect]
     Active Substance: ACETAMINOPHEN
     Route: 048
  10. OMEPRAZOLE. [Concomitant]
     Active Substance: OMEPRAZOLE
     Indication: ANALGESIC THERAPY
     Dosage: 12 DAYS
     Route: 065
     Dates: start: 20150501
  11. ASPIRIN. [Concomitant]
     Active Substance: ASPIRIN
     Indication: ANALGESIC THERAPY
     Dosage: 12 DAYS
     Route: 065
     Dates: start: 20150501

REACTIONS (5)
  - Lip swelling [Not Recovered/Not Resolved]
  - Swelling [Not Recovered/Not Resolved]
  - Erythema [Not Recovered/Not Resolved]
  - Pruritus [Not Recovered/Not Resolved]
  - Fatigue [Not Recovered/Not Resolved]

NARRATIVE: CASE EVENT DATE: 201505
